FAERS Safety Report 4934205-8 (Version None)
Quarter: 2006Q1

REPORT INFORMATION
  Report Type: 
  Country: None (occurrence: None)
  Receive Date: 20060307
  Receipt Date: 20060208
  Transmission Date: 20060701
  Serious: Yes (Death)
  Sender: FDA-Public Use
  Company Number: 2006AP00641

PATIENT
  Age: 83 Year

DRUGS (2)
  1. OMEPRAL [Suspect]
     Route: 042
  2. LANSOPRAZOLE [Suspect]

REACTIONS (2)
  - RESPIRATORY FAILURE [None]
  - THROMBOCYTOPENIA [None]
